FAERS Safety Report 8231396-0 (Version None)
Quarter: 2012Q1

REPORT INFORMATION
  Report Type: 
  Country: None (occurrence: None)
  Receive Date: 20120323
  Receipt Date: 20110316
  Transmission Date: 20120608
  Serious: Yes (Hospitalization)
  Sender: FDA-Public Use
  Company Number: DE-PFIZER INC-2012069205

PATIENT
  Age: 27 Year
  Sex: Female
  Weight: 147 kg

DRUGS (9)
  1. SOMATROPIN RDNA [Suspect]
     Indication: HYPOPITUITARISM
     Dosage: 0.8 UNK, 7 INJECTIONS PER WEEK
     Dates: start: 20050308, end: 20080618
  2. HYDROCORTISONE [Concomitant]
     Indication: BLOOD CORTICOTROPHIN DECREASED
     Dosage: 30 MG, 1X/DAY
     Dates: start: 19860701
  3. LEVOTHYROXINE [Concomitant]
     Indication: BLOOD THYROID STIMULATING HORMONE DECREASED
     Dosage: 200 UG, 1X/DAY
     Dates: start: 19860701, end: 20100120
  4. LEVOTHYROXINE [Concomitant]
     Dosage: 175 UG, 1X/DAY
     Dates: start: 20100121
  5. CYCLO-PROGYNOVA [Concomitant]
     Indication: BLOOD FOLLICLE STIMULATING HORMONE DECREASED
  6. CYCLO-PROGYNOVA [Concomitant]
     Indication: BLOOD LUTEINISING HORMONE DECREASED
     Dosage: 1 DF, 1X/DAY
  7. MINIRIN [Concomitant]
     Dosage: 0.1 UNK, DAILY
     Dates: start: 20080619
  8. SOMATROPIN RDNA [Suspect]
     Dosage: 0.6 UNK, 7 INJECTIONS PER WEEK
     Dates: start: 20080619
  9. METFORMIN [Concomitant]
     Dosage: 2000 UNK, DAILY
     Dates: start: 20080619

REACTIONS (2)
  - HYPOTENSION [None]
  - DIZZINESS [None]
